FAERS Safety Report 8233386-0 (Version None)
Quarter: 2012Q1

REPORT INFORMATION
  Report Type: 
  Country: None (occurrence: None)
  Receive Date: 20120321
  Receipt Date: 20120312
  Transmission Date: 20120608
  Serious: Yes (Hospitalization)
  Sender: FDA-Public Use
  Company Number: AUR-APL-2011-01278

PATIENT
  Age: 65 Year
  Sex: Male

DRUGS (5)
  1. BLINDED THERAPY [Suspect]
     Indication: TYPE 2 DIABETES MELLITUS
     Dates: start: 20100915, end: 20110408
  2. CARVEDILOL [Suspect]
     Indication: HYPERTENSION
     Dosage: (25 MG), UNKNOWN
  3. METFORMIN HCL [Concomitant]
  4. ASPIRIN [Concomitant]
  5. ALDACTAZIDE-A [Suspect]
     Indication: HYPERTENSION
     Dosage: UNKNOWN

REACTIONS (3)
  - HYPERKALAEMIA [None]
  - RENAL FAILURE ACUTE [None]
  - BLOOD GLUCOSE DECREASED [None]
